FAERS Safety Report 16893636 (Version 1)
Quarter: 2019Q4

REPORT INFORMATION
  Report Type: Spontaneous
  Country: GB (occurrence: GB)
  Receive Date: 20191008
  Receipt Date: 20191008
  Transmission Date: 20200122
  Serious: Yes (Disabling)
  Sender: FDA-Public Use
  Company Number: GB-MYLANLABS-2019M1092412

PATIENT
  Age: 16 Year
  Sex: Female

DRUGS (2)
  1. CITALOPRAM [Suspect]
     Active Substance: CITALOPRAM HYDROBROMIDE
     Indication: CHRONIC FATIGUE SYNDROME
     Dosage: 20 MILLIGRAM
     Route: 048
     Dates: start: 20190201, end: 20190211
  2. BUSCOPAN [Suspect]
     Active Substance: BUTYLSCOPOLAMINE BROMIDE
     Indication: ABDOMINAL PAIN
     Dosage: 80 MILLIGRAM, QD
     Route: 048
     Dates: start: 20190201, end: 20190211

REACTIONS (2)
  - Syncope [Recovered/Resolved]
  - Paralysis [Recovered/Resolved]

NARRATIVE: CASE EVENT DATE: 20190201
